FAERS Safety Report 7295149-2 (Version None)
Quarter: 2011Q1

REPORT INFORMATION
  Report Type: 
  Country: None (occurrence: None)
  Receive Date: 20110211
  Receipt Date: 20110211
  Transmission Date: 20110831
  Serious: Yes (Other)
  Sender: FDA-Public Use
  Company Number: None

PATIENT
  Age: 60 Year
  Sex: Male
  Weight: 64.4108 kg

DRUGS (1)
  1. CLARITHROMYCIN [Suspect]

REACTIONS (4)
  - DRUG INEFFECTIVE [None]
  - UNEVALUABLE EVENT [None]
  - FATIGUE [None]
  - BALANCE DISORDER [None]
